FAERS Safety Report 9173857 (Version 3)
Quarter: 2013Q2

REPORT INFORMATION
  Report Type: Report from Study
  Country: US (occurrence: US)
  Receive Date: 20130320
  Receipt Date: 20130419
  Transmission Date: 20140414
  Serious: Yes (Hospitalization)
  Sender: FDA-Public Use
  Company Number: US-BRISTOL-MYERS SQUIBB COMPANY-17366097

PATIENT
  Age: 65 Year
  Sex: Male
  Weight: 54.8 kg

DRUGS (11)
  1. CETUXIMAB [Suspect]
     Indication: HEAD AND NECK CANCER
     Dosage: VIAL:REG 1: 400MG/M2:D1:10D12?REG 2:250MG/M2+AUC 5:18D12:D8 AND D15?RECE:16J13?INT:30J13,RE:6F13
     Route: 042
     Dates: start: 20121210
  2. CARBOPLATIN [Suspect]
     Indication: HEAD AND NECK CANCER
     Dosage: 1 DF:AUC 5?RECENT DOSE:23JAN2013
     Route: 042
     Dates: start: 20121210
  3. 5-FLUOROURACIL [Suspect]
     Indication: HEAD AND NECK CANCER
     Dosage: DOSE:100MG/M2:D1-D4?RECENT DOSE:27JAN2013?DOSE REDUCED TO 800MG/M2 ON 13DEC12
     Route: 042
     Dates: start: 20121210
  4. DOXEPIN [Concomitant]
     Indication: DEPRESSION
     Dates: start: 2012
  5. LISINOPRIL [Concomitant]
     Indication: HYPERTENSION
     Dates: start: 2008, end: 20130128
  6. LORATADINE [Concomitant]
     Indication: SEASONAL ALLERGY
     Dates: start: 2008
  7. METHOCARBAMOL [Concomitant]
     Indication: BACK PAIN
     Dates: start: 2007
  8. PERCOCET [Concomitant]
     Indication: TUMOUR PAIN
     Dosage: 1DF:5/325 UNITS NOT SPECIFIED
     Dates: start: 20120312
  9. SIMVASTATIN [Concomitant]
     Indication: HYPERCHOLESTEROLAEMIA
     Dates: start: 2008
  10. POTASSIUM CHLORIDE [Concomitant]
     Indication: HYPOKALAEMIA
     Dates: start: 2012
  11. LACTULOSE [Concomitant]
     Indication: CONSTIPATION

REACTIONS (3)
  - Syncope [Recovered/Resolved]
  - Diarrhoea [Recovered/Resolved]
  - Anaemia [Recovered/Resolved]
